FAERS Safety Report 12655055 (Version 1)
Quarter: 2016Q3

REPORT INFORMATION
  Report Type: Spontaneous
  Country: CN (occurrence: CN)
  Receive Date: 20160816
  Receipt Date: 20160816
  Transmission Date: 20161109
  Serious: Yes (Hospitalization, Other)
  Sender: FDA-Public Use
  Company Number: CN-PFIZER INC-2016386772

PATIENT
  Age: 44 Year
  Sex: Male
  Weight: 72.5 kg

DRUGS (2)
  1. CEFOBID [Suspect]
     Active Substance: CEFOPERAZONE
     Indication: INFECTION
     Dosage: 2 G, 2X/DAY
     Route: 042
     Dates: start: 20160310, end: 20160312
  2. TAIMEINIKE [Suspect]
     Active Substance: PANTOPRAZOLE SODIUM
     Dosage: 160 MG, DAILY
     Route: 042
     Dates: start: 20160313, end: 20160316

REACTIONS (2)
  - Cerebral infarction [Unknown]
  - Liver injury [Recovering/Resolving]

NARRATIVE: CASE EVENT DATE: 20160317
